FAERS Safety Report 11308724 (Version 1)
Quarter: 2015Q3

REPORT INFORMATION
  Report Type: Spontaneous
  Country: US (occurrence: US)
  Receive Date: 20150724
  Receipt Date: 20150724
  Transmission Date: 20151125
  Serious: No
  Sender: FDA-Public Use
  Company Number: US-BAYER-2015-386702

PATIENT
  Age: 19 Year
  Sex: Female
  Weight: 58.5 kg

DRUGS (1)
  1. ALEVE [Suspect]
     Active Substance: NAPROXEN SODIUM
     Indication: ANALGESIC THERAPY
     Dosage: 1 DF, PRN
     Route: 048
     Dates: start: 201504, end: 201504

REACTIONS (3)
  - Lip swelling [Recovered/Resolved]
  - Swelling face [Recovered/Resolved]
  - Ear swelling [Recovered/Resolved]

NARRATIVE: CASE EVENT DATE: 201504
